APPROVED DRUG PRODUCT: KETOPROFEN
Active Ingredient: KETOPROFEN
Strength: 200MG
Dosage Form/Route: CAPSULE, EXTENDED RELEASE;ORAL
Application: A075270 | Product #001
Applicant: ACTAVIS LABORATORIES FL INC
Approved: Mar 24, 1999 | RLD: No | RS: No | Type: DISCN